FAERS Safety Report 15587998 (Version 9)
Quarter: 2019Q3

REPORT INFORMATION
  Report Type: Report from Study
  Country: US (occurrence: US)
  Receive Date: 20181105
  Receipt Date: 20190717
  Transmission Date: 20191004
  Serious: Yes (Hospitalization)
  Sender: FDA-Public Use
  Company Number: US-ACTELION-A-US2018-181160

PATIENT
  Age: 77 Year
  Sex: Male

DRUGS (3)
  1. SILDENAFIL. [Concomitant]
     Active Substance: SILDENAFIL
     Dosage: UNK, TID
  2. TRACLEER [Suspect]
     Active Substance: BOSENTAN
     Indication: PULMONARY HYPERTENSION
     Dosage: 62.5 MG, BID
     Route: 048
     Dates: start: 2017, end: 201905
  3. TRACLEER [Suspect]
     Active Substance: BOSENTAN
     Dosage: 62.5 MG, QD
     Route: 048

REACTIONS (13)
  - Vascular procedure complication [Recovering/Resolving]
  - Iron deficiency anaemia [Unknown]
  - Liver function test increased [Recovered/Resolved]
  - Dyspnoea [Not Recovered/Not Resolved]
  - Drug tolerance increased [Unknown]
  - Drug intolerance [Unknown]
  - Hernia [Unknown]
  - Liver injury [Unknown]
  - Hernia repair [Recovering/Resolving]
  - Gingival disorder [Unknown]
  - Loss of personal independence in daily activities [Unknown]
  - Liver disorder [Unknown]
  - Haematoma [Unknown]

NARRATIVE: CASE EVENT DATE: 20181023
